FAERS Safety Report 14599242 (Version 1)
Quarter: 2018Q1

REPORT INFORMATION
  Report Type: Spontaneous
  Country: US (occurrence: US)
  Receive Date: 20180303
  Receipt Date: 20180303
  Transmission Date: 20180509
  Serious: Yes (Hospitalization, Disabling, Other)
  Sender: FDA-Public Use
  Company Number: None

PATIENT
  Age: 51 Year
  Sex: Female
  Weight: 60.75 kg

DRUGS (3)
  1. CEVEMELINE [Concomitant]
  2. ATORVASTATIN [Concomitant]
     Active Substance: ATORVASTATIN
  3. LITHIUM. [Suspect]
     Active Substance: LITHIUM
     Indication: BIPOLAR DISORDER
     Route: 048

REACTIONS (6)
  - Toxicity to various agents [None]
  - Visual impairment [None]
  - Vitreous adhesions [None]
  - Cataract [None]
  - Visual field defect [None]
  - Retinitis pigmentosa [None]

NARRATIVE: CASE EVENT DATE: 20150901
